FAERS Safety Report 5385009-6 (Version None)
Quarter: 2007Q3

REPORT INFORMATION
  Report Type: 
  Country: None (occurrence: None)
  Receive Date: 20070709
  Receipt Date: 20070709
  Transmission Date: 20080115
  Serious: Yes (Life-Threatening)
  Sender: FDA-Public Use
  Company Number: None

PATIENT
  Age: 32 Year
  Sex: Female
  Weight: 117.9352 kg

DRUGS (2)
  1. ORTHO EVRA [Suspect]
     Dosage: ONE PATCH WEEKLY TRANSDERMAL
     Route: 062
     Dates: start: 20060120
  2. METFORMIN HCL [Concomitant]

REACTIONS (1)
  - DEEP VEIN THROMBOSIS [None]
